FAERS Safety Report 20734739 (Version 3)
Quarter: 2022Q2

REPORT INFORMATION
  Report Type: Spontaneous
  Country: BE (occurrence: BE)
  Receive Date: 20220421
  Receipt Date: 20220523
  Transmission Date: 20220721
  Serious: Yes (Other)
  Sender: FDA-Public Use
  Company Number: BE-PFIZER INC-202101395426

PATIENT
  Age: 63 Year
  Weight: 75 kg

DRUGS (13)
  1. FLUCLOXACILLIN [Interacting]
     Active Substance: FLUCLOXACILLIN
     Indication: Antifungal treatment
     Dosage: 12 GRAM, QD (2 G, EVERY 4 HRS)
     Route: 042
  2. FLUCLOXACILLIN [Interacting]
     Active Substance: FLUCLOXACILLIN
     Indication: Staphylococcal infection
     Dosage: 8 GRAM, QD
     Route: 042
  3. FLUCLOXACILLIN [Interacting]
     Active Substance: FLUCLOXACILLIN
     Dosage: 2 GRAM, Q4H
     Route: 042
  4. VORICONAZOLE [Interacting]
     Active Substance: VORICONAZOLE
     Indication: Staphylococcal infection
     Dosage: 8 MILLIGRAM/KILOGRAM, QD (4 MG/KG, 2X/DAY, Q12H ON DAY 2 MAINTANANCE DOSE)
     Route: 042
  5. VORICONAZOLE [Interacting]
     Active Substance: VORICONAZOLE
     Indication: Aspergillus infection
     Dosage: 12 MILLIGRAM/KILOGRAM, QD (6 MG/KG EVERY 12 HOURS, DAY 7, AUGMENTED DOSE, LOADING DOSE)
     Route: 042
  6. VORICONAZOLE [Interacting]
     Active Substance: VORICONAZOLE
     Indication: Antifungal treatment
     Dosage: 6 MG/KG Q12H(LOADING DOSE), 4 MG/KG Q12H(MAINTENANCE DOSE)
     Route: 042
  7. ISAVUCONAZOLE [Interacting]
     Active Substance: ISAVUCONAZOLE
     Indication: Aspergillus infection
     Dosage: 200 MILLIGRAM, Q8H LOADING DOSE , FOR EVERY 8 HOURS
     Route: 042
  8. ISAVUCONAZOLE [Interacting]
     Active Substance: ISAVUCONAZOLE
     Indication: Pneumonia bacterial
     Dosage: 200 MILLIGRAM, QD,200 MILLIGRAM Q24H  MAINTENANCE DOSE , FOR EVERY 24 HOURS
     Route: 042
  9. ISAVUCONAZOLE [Interacting]
     Active Substance: ISAVUCONAZOLE
     Indication: Pneumonia serratia
  10. ISAVUCONAZOLE [Interacting]
     Active Substance: ISAVUCONAZOLE
     Indication: Antifungal treatment
  11. PIPERACILLIN SODIUM\TAZOBACTAM SODIUM [Concomitant]
     Active Substance: PIPERACILLIN SODIUM\TAZOBACTAM SODIUM
     Indication: Cholangitis
     Dosage: UNK, 4 TO 0.5G FOR EVERY 6HOURS
  12. PIPERACILLIN SODIUM\TAZOBACTAM SODIUM [Concomitant]
     Active Substance: PIPERACILLIN SODIUM\TAZOBACTAM SODIUM
     Indication: Staphylococcal infection
  13. FLUCLOXACILLIN [Interacting]
     Active Substance: FLUCLOXACILLIN
     Indication: Staphylococcal infection
     Dosage: 12 GRAM, QD,2 G, EVERY 4 HRS
     Route: 042

REACTIONS (4)
  - Delirium [Unknown]
  - Drug level decreased [Unknown]
  - Liver function test increased [Unknown]
  - Drug interaction [Unknown]
